FAERS Safety Report 9707939 (Version 1)
Quarter: 2013Q4

REPORT INFORMATION
  Report Type: Spontaneous
  Country: US (occurrence: None)
  Receive Date: 20131122
  Receipt Date: 20131122
  Transmission Date: 20140711
  Serious: No
  Sender: FDA-Public Use
  Company Number: None

PATIENT
  Age: 19 Year
  Sex: Female
  Weight: 112.7 kg

DRUGS (1)
  1. IMPLANON [Suspect]

REACTIONS (9)
  - Increased appetite [None]
  - Decreased appetite [None]
  - Ovarian cyst [None]
  - Weight increased [None]
  - Alopecia [None]
  - Headache [None]
  - Pyrexia [None]
  - Diarrhoea [None]
  - Amenorrhoea [None]
